FAERS Safety Report 7360609-2 (Version None)
Quarter: 2011Q1

REPORT INFORMATION
  Report Type: 
  Country: None (occurrence: None)
  Receive Date: 20110310
  Receipt Date: 20110228
  Transmission Date: 20110831
  Serious: Yes (Death)
  Sender: FDA-Public Use
  Company Number: 840620

PATIENT
  Age: 72 Year
  Sex: Female
  Weight: 79 kg

DRUGS (20)
  1. GRAVOL TAB [Concomitant]
  2. METHIMAZOLE [Suspect]
     Indication: PRODUCT USED FOR UNKNOWN INDICATION
     Dosage: 5 MILLIGRAM, 1 EVERY 1 DAY(S), ORAL
     Route: 048
  3. KYTRIL [Concomitant]
  4. ATIVAN [Concomitant]
  5. (PANTOLOC /01263202/) [Concomitant]
  6. INSULIN [Concomitant]
  7. (PREDNISONE) [Concomitant]
  8. PREVACID [Suspect]
     Indication: PRODUCT USED FOR UNKNOWN INDICATION
     Dosage: 30 MILLIGRAM, 1 EVERY 1 DAY(S), ORAL
     Route: 048
  9. RITUXAN [Concomitant]
  10. METHOTREXATE [Suspect]
     Indication: PRODUCT USED FOR UNKNOWN INDICATION
     Dosage: 5810MG, ONCE, INTRAVENOUS
     Route: 042
  11. CYCLOPHOSPHAMIDE [Concomitant]
  12. (ILOTYCIN /00020901/) [Concomitant]
  13. (STEMETIL /00013301/) [Concomitant]
  14. LEUCOVORIN CALCIUM [Concomitant]
  15. MORPHINE SULFATE [Concomitant]
  16. DOXORUBICIN HCL FOR INJECTION, USP (DOXORUBICIN HYDROCHLORIDE) [Concomitant]
  17. DECADRON [Concomitant]
  18. FRAGMIN [Concomitant]
  19. ZANTAC [Concomitant]
  20. VINCRISTINE SULFATE [Concomitant]

REACTIONS (8)
  - DRUG LEVEL ABOVE THERAPEUTIC [None]
  - TOXICITY TO VARIOUS AGENTS [None]
  - DRUG INTERACTION [None]
  - HEPATIC FAILURE [None]
  - MULTI-ORGAN FAILURE [None]
  - NERVOUS SYSTEM DISORDER [None]
  - NON-HODGKIN'S LYMPHOMA [None]
  - RENAL FAILURE [None]
